FAERS Safety Report 4752342-8 (Version None)
Quarter: 2005Q3

REPORT INFORMATION
  Report Type: 
  Country: None (occurrence: None)
  Receive Date: 20050825
  Receipt Date: 20050812
  Transmission Date: 20060218
  Serious: Yes (Hospitalization)
  Sender: FDA-Public Use
  Company Number: FR-GLAXOSMITHKLINE-B0391246A

PATIENT
  Age: 42 Year
  Sex: Female

DRUGS (3)
  1. TRIZIVIR [Suspect]
     Indication: HIV INFECTION
     Dosage: 2UNIT PER DAY
     Route: 048
     Dates: start: 20010615, end: 20050618
  2. REBETOL [Suspect]
     Indication: HEPATITIS C
     Route: 048
     Dates: start: 20040515, end: 20040921
  3. PEGASYS [Suspect]
     Indication: HEPATITIS C
     Route: 058
     Dates: start: 20040515, end: 20040921

REACTIONS (5)
  - ASTHENIA [None]
  - BONE MARROW DISORDER [None]
  - LOCALISED INFECTION [None]
  - PANCYTOPENIA [None]
  - PARONYCHIA [None]
